FAERS Safety Report 8146800-6 (Version None)
Quarter: 2012Q1

REPORT INFORMATION
  Report Type: 
  Country: None (occurrence: None)
  Receive Date: 20120217
  Receipt Date: 20110731
  Transmission Date: 20120608
  Serious: No
  Sender: FDA-Public Use
  Company Number: US-ABBOTT-11P-163-0843070-00

PATIENT
  Sex: Female

DRUGS (2)
  1. SIMCOR [Suspect]
     Indication: BLOOD CHOLESTEROL INCREASED
     Dosage: 500MG/20MG AFTER EVENING MEAL
     Route: 048
     Dates: start: 20110728
  2. ASPIRIN [Concomitant]
     Indication: PRODUCT USED FOR UNKNOWN INDICATION
     Dosage: 30 MINUTES PRIOR TO NIASPAN DOSE
     Route: 048

REACTIONS (4)
  - FLUSHING [None]
  - NASAL CONGESTION [None]
  - SKIN BURNING SENSATION [None]
  - GENERALISED ERYTHEMA [None]
